FAERS Safety Report 23597137 (Version 2)
Quarter: 2024Q1

REPORT INFORMATION
  Report Type: Spontaneous
  Country: US (occurrence: US)
  Receive Date: 20240305
  Receipt Date: 20240327
  Transmission Date: 20240410
  Serious: Yes (Other)
  Sender: FDA-Public Use
  Company Number: US-SA-SAC20240304000117

PATIENT
  Age: 61 Year
  Sex: Female
  Weight: 210 kg

DRUGS (1)
  1. DUPIXENT [Suspect]
     Active Substance: DUPILUMAB
     Indication: Asthma
     Dosage: 300 MG, QOW
     Route: 058
     Dates: start: 202402

REACTIONS (11)
  - Loss of consciousness [Unknown]
  - Pneumonia [Unknown]
  - Syncope [Unknown]
  - Hypoglycaemia [Unknown]
  - Dehydration [Unknown]
  - Vomiting [Unknown]
  - Blood potassium decreased [Unknown]
  - Cystitis [Unknown]
  - Hernia [Unknown]
  - Gastrooesophageal reflux disease [Unknown]
  - Dizziness [Unknown]

NARRATIVE: CASE EVENT DATE: 20240101
